FAERS Safety Report 14305137 (Version 1)
Quarter: 2017Q4

REPORT INFORMATION
  Report Type: Spontaneous
  Country: JP (occurrence: JP)
  Receive Date: 20171219
  Receipt Date: 20171219
  Transmission Date: 20180321
  Serious: Yes (Hospitalization)
  Sender: FDA-Public Use
  Company Number: JP-OTSUKA-007005

PATIENT
  Age: 44 Year
  Sex: Male
  Weight: 60 kg

DRUGS (13)
  1. ABILIFY [Suspect]
     Active Substance: ARIPIPRAZOLE
     Dosage: 6 MG, QOD
     Dates: start: 20090610, end: 20090612
  2. MAGMITT [Concomitant]
     Active Substance: MAGNESIUM OXIDE
     Indication: CONSTIPATION
     Dosage: 330 MG, QID
     Route: 048
     Dates: end: 20090612
  3. KEISHIBUKURYOUGAN [Suspect]
     Active Substance: HERBALS
     Indication: VASCULAR INSUFFICIENCY
     Dosage: 2.5 MG, TID
     Route: 048
     Dates: start: 20090511, end: 20090612
  4. AMOBAN [Concomitant]
     Active Substance: ZOPICLONE
     Indication: SLEEP DISORDER
     Dosage: 15 MG, UNK
     Route: 048
     Dates: end: 20090612
  5. LIMAS [Concomitant]
     Active Substance: LITHIUM CARBONATE
     Indication: DEPRESSION
     Dosage: 200 MG, BID
     Route: 048
     Dates: end: 20090612
  6. AMOXAN [Concomitant]
     Active Substance: AMOXAPINE
     Indication: DEPRESSION
     Dosage: 25 MG, QID
     Route: 048
     Dates: end: 20090612
  7. GANATON [Concomitant]
     Active Substance: ITOPRIDE
     Indication: GASTROINTESTINAL DISORDER
     Dosage: 50 MG, TID
     Route: 048
     Dates: end: 20090612
  8. HERBAL MIXTURE [Suspect]
     Active Substance: HERBALS
     Indication: VASCULAR INSUFFICIENCY
     Dosage: 2.5 MG, TID
     Route: 048
     Dates: start: 20090511, end: 20090612
  9. RIZE [Concomitant]
     Active Substance: CLOTIAZEPAM
     Indication: DEPRESSION
     Dosage: 5 MG, TID
     Route: 048
     Dates: end: 20090612
  10. FLUVOXAMINE [Concomitant]
     Active Substance: FLUVOXAMINE
     Dosage: TABLET
     Dates: end: 20090612
  11. ABILIFY [Suspect]
     Active Substance: ARIPIPRAZOLE
     Indication: DEPRESSION
     Dosage: 6 MG, QD
     Route: 048
     Dates: start: 20090427, end: 20090609
  12. DEPROMEL [Concomitant]
     Active Substance: FLUVOXAMINE
     Indication: DEPRESSION
     Dosage: 25 MG, BID
     Route: 048
     Dates: end: 20090612
  13. ZOPICLONE [Concomitant]
     Active Substance: ZOPICLONE
     Dosage: TABLET
     Dates: end: 20090612

REACTIONS (1)
  - Cerebral haemorrhage [Recovered/Resolved with Sequelae]

NARRATIVE: CASE EVENT DATE: 20090612
